FAERS Safety Report 10525906 (Version 2)
Quarter: 2014Q4

REPORT INFORMATION
  Report Type: Spontaneous
  Country: AU (occurrence: AU)
  Receive Date: 20141017
  Receipt Date: 20141017
  Transmission Date: 20150528
  Serious: Yes (Other)
  Sender: FDA-Public Use
  Company Number: PHHY2014AU123058

PATIENT
  Age: 41 Year
  Sex: Female
  Weight: 59 kg

DRUGS (3)
  1. ONBREZ BREEZHALER [Suspect]
     Active Substance: INDACATEROL
     Indication: OFF LABEL USE
     Dosage: UKN
     Route: 055
  2. ONBREZ BREEZHALER [Suspect]
     Active Substance: INDACATEROL
     Indication: LYMPHANGIOLEIOMYOMATOSIS
     Dosage: 150 UG, QD
     Route: 055
     Dates: start: 20140903, end: 20140917
  3. EVEROLIMUS [Concomitant]
     Active Substance: EVEROLIMUS
     Indication: LYMPHANGIOLEIOMYOMATOSIS
     Dosage: 1.5 MG, BID
     Route: 048
     Dates: start: 20110602

REACTIONS (1)
  - Expired product administered [Recovered/Resolved]

NARRATIVE: CASE EVENT DATE: 20140903
